FAERS Safety Report 8066512-7 (Version None)
Quarter: 2012Q1

REPORT INFORMATION
  Report Type: 
  Country: None (occurrence: None)
  Receive Date: 20120124
  Receipt Date: 20120112
  Transmission Date: 20120608
  Serious: Yes (Other)
  Sender: FDA-Public Use
  Company Number: PHHY2012DE003462

PATIENT
  Age: 61 Year
  Sex: Female
  Weight: 91 kg

DRUGS (3)
  1. ASPIRIN [Concomitant]
  2. RASILEZ [Suspect]
     Indication: HYPERTENSION
     Route: 048
     Dates: start: 20090301, end: 20111215
  3. ENALAPRIL MALEATE [Concomitant]
     Route: 048

REACTIONS (1)
  - RENAL FAILURE ACUTE [None]
